FAERS Safety Report 16813416 (Version 1)
Quarter: 2019Q3

REPORT INFORMATION
  Report Type: Spontaneous
  Country: CA (occurrence: CA)
  Receive Date: 20190917
  Receipt Date: 20190917
  Transmission Date: 20191005
  Serious: Yes (Other)
  Sender: FDA-Public Use
  Company Number: CA-TAKEDA-2019TUS051905

PATIENT
  Age: 54 Year
  Sex: Male

DRUGS (4)
  1. CRIZOTINIB [Concomitant]
     Active Substance: CRIZOTINIB
     Dosage: UNK
  2. ALECTINIB. [Concomitant]
     Active Substance: ALECTINIB
     Dosage: UNK
  3. CERITINIB [Concomitant]
     Active Substance: CERITINIB
     Dosage: UNK
  4. ALUNBRIG [Suspect]
     Active Substance: BRIGATINIB
     Indication: NON-SMALL CELL LUNG CANCER
     Dosage: UNK
     Route: 065

REACTIONS (2)
  - Metastases to central nervous system [Unknown]
  - Drug intolerance [Unknown]
